FAERS Safety Report 5657825-4 (Version None)
Quarter: 2008Q1

REPORT INFORMATION
  Report Type: 
  Country: None (occurrence: None)
  Receive Date: 20080310
  Receipt Date: 20071113
  Transmission Date: 20080703
  Serious: Yes (Hospitalization)
  Sender: FDA-Public Use
  Company Number: US-ASTRAZENECA-2007UW26443

PATIENT
  Age: 63 Year
  Sex: Female

DRUGS (6)
  1. LISINOPRIL [Suspect]
     Indication: HYPERTENSION
     Route: 048
     Dates: start: 20070926, end: 20071101
  2. METOPROLOL TARTRATE [Concomitant]
     Dates: start: 20071101
  3. SIMVASTATIN [Concomitant]
     Dates: start: 20071101
  4. GLIPIZIDE [Concomitant]
     Dates: start: 20071101
  5. METFORMIN HYDROCHLORIDE [Concomitant]
     Dates: start: 20071101
  6. ACTOS [Concomitant]
     Indication: DIABETES MELLITUS
     Route: 048
     Dates: start: 20071031, end: 20071031

REACTIONS (4)
  - HYPERHIDROSIS [None]
  - LETHARGY [None]
  - LISTLESS [None]
  - NAUSEA [None]
